FAERS Safety Report 20946483 (Version 1)
Quarter: 2022Q2

REPORT INFORMATION
  Report Type: Spontaneous
  Country: CZ (occurrence: None)
  Receive Date: 20220610
  Receipt Date: 20220610
  Transmission Date: 20220721
  Serious: Yes (Other)
  Sender: FDA-Public Use
  Company Number: CZ-Merck Healthcare KGaA-9217542

PATIENT
  Age: 60 Year
  Sex: Male

DRUGS (5)
  1. EUTHYROX [Suspect]
     Active Substance: LEVOTHYROXINE SODIUM
     Indication: Post procedural hypothyroidism
     Dosage: 1275 MCG/WEEK(EUTHYROX 150 MCG 1-0-0; EUTHYROX 50: 2 DAYS: 1-0-0, 5 DAYS: 0.5-0-0)
     Dates: start: 2010, end: 20201208
  2. EUTHYROX [Suspect]
     Active Substance: LEVOTHYROXINE SODIUM
     Indication: Hormone replacement therapy
     Dosage: DOSAGE 1-0-0
     Route: 048
     Dates: start: 202011, end: 20201208
  3. EUTHYROX [Suspect]
     Active Substance: LEVOTHYROXINE SODIUM
     Dosage: LONG TERM MEDICATION, DOSAGE 1-0-0 FOR EMPTY STOMACH IN NOVEMBER 2020 SWITCH TO NEW BATCH NUMBER
     Route: 048
     Dates: start: 2010, end: 202011
  4. EUTHYROX [Suspect]
     Active Substance: LEVOTHYROXINE SODIUM
     Dosage: DOSAGE FOR EMPTY STOMACH 2 DAYS 1-0-0, 5 DAYS 1/2-0-0
     Route: 048
     Dates: start: 202011, end: 20201208
  5. EUTHYROX [Suspect]
     Active Substance: LEVOTHYROXINE SODIUM
     Dosage: LONG TERM MEDICATION, DOSAGE FOR EMPTY STOMACH 2 DAYS 1-0-0, 5 DAYS 1/2-0-0
     Route: 048
     Dates: start: 2010, end: 202011

REACTIONS (3)
  - Hypothyroidism [Recovered/Resolved]
  - Drug ineffective [Unknown]
  - Suspected product quality issue [Unknown]

NARRATIVE: CASE EVENT DATE: 20201101
